FAERS Safety Report 22792853 (Version 3)
Quarter: 2024Q1

REPORT INFORMATION
  Report Type: Spontaneous
  Country: GB (occurrence: GB)
  Receive Date: 20230807
  Receipt Date: 20240322
  Transmission Date: 20240410
  Serious: Yes (Other)
  Sender: FDA-Public Use
  Company Number: GB-BRISTOL-MYERS SQUIBB COMPANY-2023-110225

PATIENT
  Age: 57 Year
  Sex: Male

DRUGS (2)
  1. APIXABAN [Suspect]
     Active Substance: APIXABAN
     Indication: Embolic stroke
  2. APIXABAN [Suspect]
     Active Substance: APIXABAN

REACTIONS (2)
  - Cutaneous vasculitis [Recovered/Resolved]
  - Off label use [Unknown]
